FAERS Safety Report 9131205 (Version 2)
Quarter: 2013Q2

REPORT INFORMATION
  Report Type: Report from Study
  Country: DK (occurrence: DK)
  Receive Date: 20130301
  Receipt Date: 20130426
  Transmission Date: 20140414
  Serious: Yes (Death, Life-Threatening, Hospitalization)
  Sender: FDA-Public Use
  Company Number: DK-NOVOPROD-371626

PATIENT
  Age: 73 Year
  Sex: Male
  Weight: 72 kg

DRUGS (15)
  1. BLINDED LIRAGLUTIDE FLEXPEN [Suspect]
     Indication: CARDIAC FAILURE
     Dosage: UNK
     Route: 058
     Dates: start: 20130124
  2. BLINDED NO DRUG GIVEN [Suspect]
     Indication: CARDIAC FAILURE
     Dosage: UNK
     Route: 058
     Dates: start: 20130124
  3. BLINDED PLACEBO FLEXPEN [Suspect]
     Indication: CARDIAC FAILURE
     Dosage: UNK
     Route: 058
     Dates: start: 20130124
  4. BLINDED UNKNOWN [Suspect]
     Indication: CARDIAC FAILURE
     Dosage: UNK
     Route: 058
     Dates: start: 20130124
  5. BLINDED LIRAGLUTIDE FLEXPEN [Suspect]
     Dosage: 1.8 MG, QD
     Route: 058
     Dates: start: 20130213, end: 20130214
  6. BLINDED NO DRUG GIVEN [Suspect]
     Dosage: 1.8 MG, QD
     Route: 058
     Dates: start: 20130213, end: 20130214
  7. BLINDED PLACEBO FLEXPEN [Suspect]
     Dosage: 1.8 MG, QD
     Route: 058
     Dates: start: 20130213, end: 20130214
  8. BLINDED UNKNOWN [Suspect]
     Dosage: 1.8 MG, QD
     Route: 058
     Dates: start: 20130213, end: 20130214
  9. PERSANTIN [Concomitant]
     Indication: CARDIAC FAILURE
     Dosage: UNK
     Dates: start: 1995
  10. CARVEDILOL [Concomitant]
     Indication: CARDIAC FAILURE
     Dosage: UNK
     Dates: start: 1995
  11. HJERDYL [Concomitant]
     Indication: MYOCARDIAL ISCHAEMIA
     Dosage: UNK
     Dates: start: 1995
  12. FURIX [Concomitant]
     Indication: CARDIAC FAILURE
     Dosage: UNK
     Dates: start: 1995
  13. LOSARTANKALIUM [Concomitant]
     Indication: CARDIAC FAILURE
     Dosage: UNK
     Dates: start: 1995
  14. SPIRON                             /00006201/ [Concomitant]
     Indication: CARDIAC FAILURE
  15. SIMVASTATIN [Concomitant]
     Indication: DYSLIPIDAEMIA
     Dosage: UNK
     Dates: start: 1995

REACTIONS (1)
  - Ventricular tachyarrhythmia [Fatal]
